FAERS Safety Report 21672477 (Version 1)
Quarter: 2022Q4

REPORT INFORMATION
  Report Type: Spontaneous
  Country: GB (occurrence: GB)
  Receive Date: 20221202
  Receipt Date: 20221202
  Transmission Date: 20230113
  Serious: Yes (Death)
  Sender: FDA-Public Use
  Company Number: GB-SUN PHARMACEUTICAL INDUSTRIES LTD-2022R1-366926

PATIENT
  Age: 19 Year
  Sex: Female

DRUGS (1)
  1. TEMOZOLOMIDE [Suspect]
     Active Substance: TEMOZOLOMIDE
     Indication: Astrocytoma, low grade
     Dosage: 75 MILLIGRAM/SQ. METER, DAILY
     Route: 065

REACTIONS (1)
  - Drug ineffective [Fatal]
